FAERS Safety Report 24025161 (Version 5)
Quarter: 2024Q3

REPORT INFORMATION
  Report Type: Report from Study
  Country: AR (occurrence: AR)
  Receive Date: 20240628
  Receipt Date: 20240710
  Transmission Date: 20241016
  Serious: No
  Sender: ROCHE
  Company Number: AR-ROCHE-3513862

PATIENT
  Age: 35 Year
  Sex: Female

DRUGS (1)
  1. PHESGO [Suspect]
     Active Substance: HYALURONIDASE-ZZXF\PERTUZUMAB\TRASTUZUMAB
     Indication: Breast cancer metastatic
     Dosage: DOSE AND FREQUENCY WERE NOT REPORTED
     Route: 058
     Dates: start: 20240216

REACTIONS (4)
  - Nausea [Recovering/Resolving]
  - Constipation [Recovering/Resolving]
  - Skin exfoliation [Recovering/Resolving]
  - White blood cell count decreased [Recovered/Resolved]
